FAERS Safety Report 19423768 (Version 1)
Quarter: 2021Q2

REPORT INFORMATION
  Report Type: Report from Study
  Country: GB (occurrence: GB)
  Receive Date: 20210616
  Receipt Date: 20210616
  Transmission Date: 20210717
  Serious: Yes (Hospitalization)
  Sender: FDA-Public Use
  Company Number: GB-TAKEDA-2021TUS036707

PATIENT
  Sex: Male

DRUGS (1)
  1. VEDOLIZUMAB [Suspect]
     Active Substance: VEDOLIZUMAB
     Indication: COLITIS ULCERATIVE
     Dosage: 108 MILLIGRAM
     Route: 058
     Dates: start: 202106

REACTIONS (11)
  - Adverse drug reaction [Unknown]
  - Confusional state [Unknown]
  - Vision blurred [Unknown]
  - Hot flush [Unknown]
  - Fatigue [Unknown]
  - Agitation [Unknown]
  - Dizziness [Unknown]
  - Chest discomfort [Unknown]
  - Wheezing [Unknown]
  - Abdominal pain upper [Unknown]
  - Cold sweat [Unknown]
